FAERS Safety Report 4383195-8 (Version None)
Quarter: 2004Q2

REPORT INFORMATION
  Report Type: 
  Country: None (occurrence: None)
  Receive Date: 20040623
  Receipt Date: 20040611
  Transmission Date: 20050107
  Serious: Yes (Other)
  Sender: FDA-Public Use
  Company Number: PHBS2004JP07809

PATIENT
  Age: 82 Year
  Sex: Male

DRUGS (1)
  1. LOPRESSOR [Suspect]

REACTIONS (4)
  - LYMPHOCYTE STIMULATION TEST POSITIVE [None]
  - NEPHRITIS INTERSTITIAL [None]
  - PROTEINURIA [None]
  - RENAL IMPAIRMENT [None]
